FAERS Safety Report 8610625-5 (Version None)
Quarter: 2012Q3

REPORT INFORMATION
  Report Type: 
  Country: None (occurrence: None)
  Receive Date: 20120808
  Receipt Date: 20120723
  Transmission Date: 20120928
  Serious: Yes (Hospitalization)
  Sender: FDA-Public Use
  Company Number: JPI-P-021166

PATIENT
  Age: 65 Year
  Sex: Female
  Weight: 71.6683 kg

DRUGS (5)
  1. XYREM [Suspect]
     Indication: CATAPLEXY
     Dosage: SEE IMAGE
     Route: 048
     Dates: start: 20081229
  2. XYREM [Suspect]
     Indication: CATAPLEXY
     Dosage: SEE IMAGE
     Route: 048
     Dates: start: 20080101
  3. XYREM [Suspect]
     Indication: CATAPLEXY
     Dosage: SEE IMAGE
     Route: 048
     Dates: end: 20120601
  4. XYREM [Suspect]
     Indication: CATAPLEXY
     Dosage: SEE IMAGE
     Route: 048
     Dates: start: 20090914
  5. MULTIPLE UNSPECIFIED MEDICATIONS [Concomitant]

REACTIONS (15)
  - INFECTION [None]
  - UPPER LIMB FRACTURE [None]
  - INCORRECT DOSE ADMINISTERED [None]
  - MIDDLE INSOMNIA [None]
  - BACK PAIN [None]
  - OCULAR HYPERAEMIA [None]
  - RESTLESSNESS [None]
  - NAUSEA [None]
  - ABDOMINAL DISCOMFORT [None]
  - FATIGUE [None]
  - FALL [None]
  - HIP FRACTURE [None]
  - DIZZINESS [None]
  - PAIN [None]
  - EYE SWELLING [None]
